FAERS Safety Report 13386237 (Version 2)
Quarter: 2017Q2

REPORT INFORMATION
  Report Type: Spontaneous
  Country: FR (occurrence: FR)
  Receive Date: 20170330
  Receipt Date: 20170403
  Transmission Date: 20170830
  Serious: Yes (Other)
  Sender: FDA-Public Use
  Company Number: FR-MYLANLABS-2017M1019447

PATIENT

DRUGS (6)
  1. CLOZAPINE MYLAN [Suspect]
     Active Substance: CLOZAPINE
     Indication: PRODUCT USED FOR UNKNOWN INDICATION
     Dosage: 400 MG, PM
     Dates: start: 2014
  2. LEXOMIL [Concomitant]
     Active Substance: BROMAZEPAM
     Dosage: 1 DF, PM
  3. LEXOMIL [Concomitant]
     Active Substance: BROMAZEPAM
     Dosage: 1 DF, PM
  4. ABILIFY [Concomitant]
     Active Substance: ARIPIPRAZOLE
     Indication: PRODUCT USED FOR UNKNOWN INDICATION
     Dosage: 15 MG, AM
  5. LEXOMIL [Concomitant]
     Active Substance: BROMAZEPAM
     Indication: PRODUCT USED FOR UNKNOWN INDICATION
     Dosage: 1 DF, AM
  6. LOXAPAC [Concomitant]
     Active Substance: LOXAPINE SUCCINATE
     Indication: PRODUCT USED FOR UNKNOWN INDICATION
     Dosage: 50 MG, PM

REACTIONS (5)
  - Coma [Unknown]
  - Confusional state [Unknown]
  - Sleep disorder [Unknown]
  - Therapy cessation [Unknown]
  - Drug ineffective [Unknown]

NARRATIVE: CASE EVENT DATE: 201408
